FAERS Safety Report 17929665 (Version 5)
Quarter: 2020Q4

REPORT INFORMATION
  Report Type: Spontaneous
  Country: US (occurrence: US)
  Receive Date: 20200623
  Receipt Date: 20201006
  Transmission Date: 20210113
  Serious: No
  Sender: FDA-Public Use
  Company Number: US-PFIZER INC-2019202018

PATIENT
  Age: 36 Year
  Sex: Female
  Weight: 60.78 kg

DRUGS (6)
  1. CITALOPRAM [Concomitant]
     Active Substance: CITALOPRAM HYDROBROMIDE
     Indication: DEPRESSION
     Dosage: 20 MG, 1X/DAY
     Route: 048
  2. CHANTIX [Suspect]
     Active Substance: VARENICLINE TARTRATE
     Indication: SMOKING CESSATION THERAPY
     Dosage: 1 DF, 2X/DAY (STARTER PACK 0.5 MG-1 MG ORAL TABLET)
     Route: 048
  3. CHANTIX [Suspect]
     Active Substance: VARENICLINE TARTRATE
     Dosage: UNK (TAKING 1 TABLET INSTEAD OF 3 TABLETS)
     Route: 048
  4. CHANTIX [Suspect]
     Active Substance: VARENICLINE TARTRATE
     Dosage: 1 DF, 1X/DAY(TAKING 1 TABLET A DAY INSTEAD OF 2 TABLETS)
     Route: 048
  5. VARENICLINE TARTRATE [Suspect]
     Active Substance: VARENICLINE TARTRATE
     Dosage: 1 DF, 2X/DAY
  6. CITALOPRAM [Concomitant]
     Active Substance: CITALOPRAM HYDROBROMIDE
     Indication: ANXIETY

REACTIONS (2)
  - Intentional product misuse [Unknown]
  - Fall [Unknown]
